FAERS Safety Report 19246590 (Version 1)
Quarter: 2021Q2

REPORT INFORMATION
  Report Type: Spontaneous
  Country: US (occurrence: US)
  Receive Date: 20210512
  Receipt Date: 20210512
  Transmission Date: 20210717
  Serious: Yes (Hospitalization)
  Sender: FDA-Public Use
  Company Number: None

PATIENT
  Age: 33 Year
  Sex: Male
  Weight: 79 kg

DRUGS (8)
  1. THIOGUANINE (6?TG) [Suspect]
     Active Substance: THIOGUANINE ANHYDROUS
     Dates: end: 20210508
  2. ONCASPAR [Suspect]
     Active Substance: PEGASPARGASE
     Dates: end: 20210401
  3. METHOTREXATE. [Suspect]
     Active Substance: METHOTREXATE
     Dates: end: 20210503
  4. CYCLOPHOSPHAMIDE. [Suspect]
     Active Substance: CYCLOPHOSPHAMIDE
     Dates: end: 20210426
  5. CYTARABINE. [Suspect]
     Active Substance: CYTARABINE
     Dates: end: 20210506
  6. DOXORUBICIN HYDROCHLORIDE. [Suspect]
     Active Substance: DOXORUBICIN HYDROCHLORIDE
     Dates: end: 20210412
  7. VINCRISTINE SULFATE. [Suspect]
     Active Substance: VINCRISTINE SULFATE
     Dates: end: 20210412
  8. DEXAMETHASONE. [Suspect]
     Active Substance: DEXAMETHASONE
     Dates: end: 20210418

REACTIONS (2)
  - Tachycardia [None]
  - Febrile neutropenia [None]

NARRATIVE: CASE EVENT DATE: 20210508
